FAERS Safety Report 19701557 (Version 2)
Quarter: 2021Q4

REPORT INFORMATION
  Report Type: Report from Study
  Country: US (occurrence: US)
  Receive Date: 20210814
  Receipt Date: 20211025
  Transmission Date: 20220303
  Serious: No
  Sender: FDA-Public Use
  Company Number: NVSC2021US176566

PATIENT

DRUGS (1)
  1. COSENTYX [Suspect]
     Active Substance: SECUKINUMAB
     Indication: Psoriasis
     Dosage: 300 MG
     Route: 058

REACTIONS (7)
  - Arthralgia [Unknown]
  - Fatigue [Unknown]
  - Contusion [Unknown]
  - Depression [Unknown]
  - Weight increased [Unknown]
  - Musculoskeletal stiffness [Unknown]
  - Psoriasis [Unknown]
